FAERS Safety Report 9372752 (Version 1)
Quarter: 2013Q2

REPORT INFORMATION
  Report Type: Report from Study
  Country: US (occurrence: US)
  Receive Date: 20130627
  Receipt Date: 20130627
  Transmission Date: 20140414
  Serious: Yes (Death, Other)
  Sender: FDA-Public Use
  Company Number: US-MYLANLABS-2013S1007528

PATIENT
  Age: 69 Year
  Sex: Male
  Weight: 66.23 kg

DRUGS (6)
  1. CLOZAPINE TABLETS [Suspect]
     Route: 048
  2. CLOZAPINE TABLETS [Suspect]
     Route: 048
  3. FLOMAX /01280302/ [Concomitant]
     Route: 048
  4. CARBIDOPA AND LEVODOPA [Concomitant]
     Dosage: USING 1 AND 1/2 OF A 25MG/100MG TABLET
     Route: 048
  5. SINEMET [Concomitant]
     Dates: start: 20130225, end: 20130308
  6. LEVAQUIN [Concomitant]
     Dates: start: 20130225, end: 20130308

REACTIONS (2)
  - Parkinson^s disease [Fatal]
  - Dementia with Lewy bodies [Fatal]
